FAERS Safety Report 5008151-8 (Version None)
Quarter: 2006Q2

REPORT INFORMATION
  Report Type: 
  Country: None (occurrence: None)
  Receive Date: 20060404
  Receipt Date: 20051005
  Transmission Date: 20061013
  Serious: Yes (Other)
  Sender: FDA-Public Use
  Company Number: 2005138692

PATIENT
  Age: 27 Year
  Sex: Female

DRUGS (1)
  1. GEODON [Suspect]
     Dosage: (THERAPY DATES: 2-3 YEARS AGO - UNKNOWN)

REACTIONS (1)
  - WEIGHT INCREASED [None]
